FAERS Safety Report 22884218 (Version 5)
Quarter: 2024Q3

REPORT INFORMATION
  Report Type: Report from Study
  Country: BR (occurrence: BR)
  Receive Date: 20230830
  Receipt Date: 20240813
  Transmission Date: 20241017
  Serious: Yes (Hospitalization)
  Sender: NOVARTIS
  Company Number: BR-002147023-NVSC2023BR151238

PATIENT
  Age: 56 Year
  Sex: Female

DRUGS (2)
  1. KISQALI [Suspect]
     Active Substance: RIBOCICLIB
     Indication: Breast cancer
     Dosage: UNK
     Route: 065
     Dates: start: 202303
  2. FEMARA [Suspect]
     Active Substance: LETROZOLE
     Indication: Product used for unknown indication
     Dosage: UNK
     Route: 065

REACTIONS (8)
  - Liver disorder [Recovering/Resolving]
  - Hepatitis [Recovered/Resolved]
  - Hepatic lesion [Recovered/Resolved]
  - Hepatic lesion [Recovered/Resolved]
  - Ligament disorder [Unknown]
  - Breast pain [Recovered/Resolved]
  - Arthralgia [Recovered/Resolved]
  - Product barcode issue [Unknown]

NARRATIVE: CASE EVENT DATE: 20230703
